FAERS Safety Report 17289777 (Version 20)
Quarter: 2023Q2

REPORT INFORMATION
  Report Type: Spontaneous
  Country: US (occurrence: US)
  Receive Date: 20200120
  Receipt Date: 20230510
  Transmission Date: 20230722
  Serious: Yes (Hospitalization, Other)
  Sender: FDA-Public Use
  Company Number: US-PFIZER INC-2020020344

PATIENT
  Age: 66 Year
  Sex: Female
  Weight: 117.93 kg

DRUGS (5)
  1. ARTHROTEC [Suspect]
     Active Substance: DICLOFENAC SODIUM\MISOPROSTOL
     Indication: Rheumatoid arthritis
     Dosage: 1 DF, DAILY
     Route: 048
     Dates: start: 2016, end: 20191224
  2. ARTHROTEC [Suspect]
     Active Substance: DICLOFENAC SODIUM\MISOPROSTOL
     Indication: Osteoarthritis
     Dosage: 75 MG, 1X/DAY
     Route: 048
  3. ARTHROTEC [Suspect]
     Active Substance: DICLOFENAC SODIUM\MISOPROSTOL
     Indication: Arthritis
     Dosage: 1 DF, DAILY (75-0.2 MG TBEC)
     Route: 048
     Dates: start: 20220815
  4. VITAMIN D NOS [Concomitant]
     Active Substance: VITAMIN D NOS
     Indication: Vitamin D decreased
     Dosage: 500000 MG, WEEKLY
     Dates: start: 2014
  5. VITAMIN D NOS [Concomitant]
     Active Substance: VITAMIN D NOS
     Dosage: UNK
     Dates: start: 201409

REACTIONS (2)
  - Hiatus hernia [Recovered/Resolved]
  - Product dispensing error [Unknown]

NARRATIVE: CASE EVENT DATE: 20190101
